FAERS Safety Report 16157292 (Version 1)
Quarter: 2019Q2

REPORT INFORMATION
  Report Type: Spontaneous
  Country: US (occurrence: US)
  Receive Date: 20190403
  Receipt Date: 20190403
  Transmission Date: 20190711
  Serious: Yes (Other)
  Sender: FDA-Public Use
  Company Number: None

PATIENT
  Age: 87 Year
  Sex: Female
  Weight: 59.4 kg

DRUGS (3)
  1. WALKER [Concomitant]
  2. AUGMENTIN [Suspect]
     Active Substance: AMOXICILLIN\CLAVULANATE POTASSIUM
     Indication: PRODUCT USED FOR UNKNOWN INDICATION
     Route: 048
     Dates: start: 20190330, end: 20190403
  3. POTASSIUM GLUCONATE [Suspect]
     Active Substance: POTASSIUM GLUCONATE

REACTIONS (8)
  - Oropharyngeal pain [None]
  - Decreased appetite [None]
  - Rash [None]
  - Abdominal pain upper [None]
  - Dysphagia [None]
  - Constipation [None]
  - Throat irritation [None]
  - Nausea [None]

NARRATIVE: CASE EVENT DATE: 20190403
